FAERS Safety Report 8767052 (Version 2)
Quarter: 2012Q4

REPORT INFORMATION
  Report Type: Report from Study
  Country: JP (occurrence: JP)
  Receive Date: 20120904
  Receipt Date: 20121001
  Transmission Date: 20130627
  Serious: Yes (Other)
  Sender: FDA-Public Use
  Company Number: JP-PFIZER INC-2012124152

PATIENT
  Age: 83 Year
  Sex: Female
  Weight: 44 kg

DRUGS (4)
  1. NORVASC [Suspect]
     Indication: HYPERTENSION
     Dosage: 5 mg, 2x/day
     Route: 048
     Dates: start: 20120222, end: 20120313
  2. NORVASC [Suspect]
     Dosage: 5 mg, 2x/day
     Dates: start: 20120411, end: 20120507
  3. LOXONIN [Concomitant]
     Indication: PAIN
     Dosage: UNK
     Route: 048
  4. VASOLAN [Concomitant]
     Indication: SUPRAVENTRICULAR TACHYCARDIA
     Dosage: 40 mg, 2x/day
     Route: 048
     Dates: start: 20120309

REACTIONS (3)
  - Oedema peripheral [Recovered/Resolved]
  - Erythema [Recovering/Resolving]
  - Pain in extremity [Recovered/Resolved]
